FAERS Safety Report 8344063-X (Version None)
Quarter: 2012Q2

REPORT INFORMATION
  Report Type: 
  Country: None (occurrence: None)
  Receive Date: 20120508
  Receipt Date: 20120507
  Transmission Date: 20120825
  Serious: Yes (Death, Other)
  Sender: FDA-Public Use
  Company Number: US-PFIZER INC-2011272345

PATIENT
  Sex: Female
  Weight: 47.619 kg

DRUGS (3)
  1. PREPARATION H COOLING [Suspect]
     Indication: HAEMORRHOIDS
     Dosage: UNK, 1X/DAY
     Route: 061
  2. PREPARATION H COOLING [Suspect]
     Indication: GENERAL PHYSICAL HEALTH DETERIORATION
  3. PREPARATION H COOLING [Suspect]
     Indication: NEOPLASM MALIGNANT

REACTIONS (1)
  - CARDIAC FAILURE [None]
